FAERS Safety Report 8059681-6 (Version None)
Quarter: 2012Q1

REPORT INFORMATION
  Report Type: 
  Country: None (occurrence: None)
  Receive Date: 20120119
  Receipt Date: 20120119
  Transmission Date: 20120608
  Serious: Yes (Hospitalization)
  Sender: FDA-Public Use
  Company Number: None

PATIENT
  Age: 67 Year
  Sex: Female
  Weight: 90.9 kg

DRUGS (16)
  1. WARFARIN SODIUM [Suspect]
     Indication: ATRIAL FIBRILLATION
     Dosage: 6 MG DAILY PO CHRONIC
     Route: 048
  2. WELCHOL [Concomitant]
  3. SPIRIVA [Concomitant]
  4. QUINAPRIL [Concomitant]
  5. DILTIAZEM HCL [Concomitant]
  6. MUCINEX [Concomitant]
  7. WARFARIN SODIUM [Concomitant]
  8. ALLACE [Concomitant]
  9. CALCIUM CARBONATE [Concomitant]
  10. M.V.I. [Concomitant]
  11. LASIX [Concomitant]
  12. LUMIGAN [Concomitant]
  13. DIGOXIN [Suspect]
     Indication: HYPERTENSION
     Dosage: 0.28 MG DAILY PO CHRONIC
     Route: 048
  14. ADVAIR DISKUS 100/50 [Concomitant]
  15. LASIX [Concomitant]
  16. OMEPRAZOLE [Concomitant]

REACTIONS (5)
  - INTERNATIONAL NORMALISED RATIO DECREASED [None]
  - NODAL ARRHYTHMIA [None]
  - TOXICITY TO VARIOUS AGENTS [None]
  - RENAL FAILURE ACUTE [None]
  - INTERNATIONAL NORMALISED RATIO INCREASED [None]
